FAERS Safety Report 6374916-3 (Version None)
Quarter: 2009Q3

REPORT INFORMATION
  Report Type: 
  Country: None (occurrence: None)
  Receive Date: 20090924
  Receipt Date: 20090720
  Transmission Date: 20100115
  Serious: Yes (Hospitalization)
  Sender: FDA-Public Use
  Company Number: US-ASTRAZENECA-2009UW21158

PATIENT
  Age: 35 Year
  Sex: Female

DRUGS (4)
  1. SEROQUEL [Suspect]
     Dosage: 300-400 MG
     Route: 048
  2. LAMICTAL [Concomitant]
  3. PROZAC [Concomitant]
  4. SYNTHROID [Concomitant]

REACTIONS (1)
  - DYSTONIA [None]
